FAERS Safety Report 6303033-3 (Version None)
Quarter: 2009Q3

REPORT INFORMATION
  Report Type: 
  Country: None (occurrence: None)
  Receive Date: 20090810
  Receipt Date: 20090806
  Transmission Date: 20100115
  Serious: Yes (Hospitalization, Other)
  Sender: FDA-Public Use
  Company Number: US-ROXANE LABORATORIES, INC.-2009-RO-00784RO

PATIENT
  Age: 65 Year
  Sex: Female
  Weight: 100 kg

DRUGS (23)
  1. CITALOPRAM HYDROBROMIDE [Suspect]
     Indication: DEPRESSION
     Route: 048
  2. ATENOLOL [Suspect]
  3. ENALAPRIL MALEATE [Suspect]
  4. VENLAFAXINE HYDROCHLORIDE [Suspect]
  5. SODIUM BICARBONATE [Suspect]
     Indication: RESUSCITATION
  6. SODIUM BICARBONATE [Suspect]
  7. ATROPINE [Suspect]
     Indication: RESUSCITATION
  8. EPINEPHRINE [Suspect]
     Indication: RESUSCITATION
  9. EPINEPHRINE [Suspect]
     Dosage: 1 MG
  10. CALCIUM CHLORIDE [Suspect]
     Indication: RESUSCITATION
  11. GLUCAGON [Suspect]
     Indication: RESUSCITATION
     Route: 042
  12. DEXTROSE [Suspect]
     Indication: RESUSCITATION
     Route: 042
  13. INSULIN [Suspect]
     Indication: RESUSCITATION
     Route: 042
  14. INSULIN [Suspect]
     Indication: OVERDOSE
     Route: 042
  15. INSULIN [Suspect]
     Indication: CARDIAC DISORDER
  16. INSULIN [Suspect]
     Indication: POOR PERIPHERAL CIRCULATION
  17. INSULIN [Suspect]
  18. SODIUM CHLORIDE [Suspect]
     Indication: RESUSCITATION
  19. NOREPINEPHRINE BITARTRATE [Suspect]
     Indication: BLOOD PRESSURE DECREASED
  20. VASOPRESSIN [Suspect]
  21. VENLAFAXINE HYDROCHLORIDE [Suspect]
  22. AMITRIPTYLINE [Suspect]
  23. NORTRIPTYLINE HCL [Suspect]

REACTIONS (17)
  - ANOXIC ENCEPHALOPATHY [None]
  - BRADYCARDIA [None]
  - CARDIAC FAILURE [None]
  - CARDIO-RESPIRATORY ARREST [None]
  - CARDIOGENIC SHOCK [None]
  - CONVULSION [None]
  - DRUG TOXICITY [None]
  - ELECTROMECHANICAL DISSOCIATION [None]
  - HYPOPERFUSION [None]
  - HYPOTENSION [None]
  - LEFT VENTRICULAR HYPERTROPHY [None]
  - OVERDOSE [None]
  - PERIPHERAL ISCHAEMIA [None]
  - POOR PERIPHERAL CIRCULATION [None]
  - PULMONARY EMBOLISM [None]
  - RHYTHM IDIOVENTRICULAR [None]
  - VENTRICULAR TACHYCARDIA [None]
